FAERS Safety Report 6384505-2 (Version None)
Quarter: 2009Q3

REPORT INFORMATION
  Report Type: 
  Country: None (occurrence: None)
  Receive Date: 20090924
  Receipt Date: 20090227
  Transmission Date: 20100115
  Serious: Yes (Hospitalization, Other)
  Sender: FDA-Public Use
  Company Number: 57233

PATIENT
  Age: 71 Year
  Sex: Female
  Weight: 78.9259 kg

DRUGS (1)
  1. CYTARABINE [Suspect]
     Indication: ACUTE MYELOID LEUKAEMIA
     Dosage: 191MG IV; 1-7 DAYS
     Route: 042

REACTIONS (3)
  - LEUKOPENIA [None]
  - RESPIRATORY DISORDER [None]
  - THROMBOCYTOPENIA [None]
